FAERS Safety Report 13989431 (Version 1)
Quarter: 2017Q3

REPORT INFORMATION
  Report Type: Spontaneous
  Country: US (occurrence: US)
  Receive Date: 20170920
  Receipt Date: 20170920
  Transmission Date: 20171128
  Serious: No
  Sender: FDA-Public Use
  Company Number: US-BAUSCH-BL-2017-007696

PATIENT
  Sex: Male

DRUGS (8)
  1. VALIUM [Concomitant]
     Active Substance: DIAZEPAM
     Indication: PRODUCT USED FOR UNKNOWN INDICATION
     Dosage: A FEW YEARS AGO
  2. DIASTAT [Suspect]
     Active Substance: DIAZEPAM
     Dosage: SWITCHED OVER TO GEL FORM ABOUT 20 YEARS AGO
     Route: 065
  3. DIASTAT [Suspect]
     Active Substance: DIAZEPAM
     Dosage: 7 DIASTAT SYRINGES
     Route: 054
     Dates: start: 201612
  4. DIASTAT [Suspect]
     Active Substance: DIAZEPAM
     Route: 054
  5. DEPAKOTE SPRINKLES [Concomitant]
     Active Substance: DIVALPROEX SODIUM
     Indication: PRODUCT USED FOR UNKNOWN INDICATION
     Dosage: STARTED WHEN SHE WAS 2 YEARS OLD
  6. DIASTAT [Suspect]
     Active Substance: DIAZEPAM
     Indication: SEIZURE
     Dosage: STARTED WHEN HE WAS 7 YEARS OLD
     Route: 065
  7. LYRICA [Concomitant]
     Active Substance: PREGABALIN
     Indication: PRODUCT USED FOR UNKNOWN INDICATION
     Dosage: A FEW YEARS AGO
  8. ZONEGRAN [Concomitant]
     Active Substance: ZONISAMIDE
     Indication: PRODUCT USED FOR UNKNOWN INDICATION
     Dosage: A FEW YEARS AGO

REACTIONS (2)
  - Circumstance or information capable of leading to medication error [Unknown]
  - Bowel movement irregularity [Unknown]
